FAERS Safety Report 25928926 (Version 1)
Quarter: 2025Q4

REPORT INFORMATION
  Report Type: Spontaneous
  Country: GB (occurrence: GB)
  Receive Date: 20251016
  Receipt Date: 20251016
  Transmission Date: 20260118
  Serious: Yes (Other)
  Sender: RECKITT BENCKISER
  Company Number: GB-RBHC-20-25-GBR-RB-0021545

PATIENT
  Age: 43 Year
  Sex: Female
  Weight: 62 kg

DRUGS (1)
  1. ACETAMINOPHEN\CAFFEINE\GUAIFENESIN\PHENYLEPHRINE [Suspect]
     Active Substance: ACETAMINOPHEN\CAFFEINE\GUAIFENESIN\PHENYLEPHRINE
     Indication: Nasopharyngitis
     Dosage: UNKNOWN
     Route: 065
     Dates: start: 20251008

REACTIONS (3)
  - Vulvovaginal swelling [Unknown]
  - Vulvovaginal pruritus [Unknown]
  - Generalised bullous fixed drug eruption [Recovering/Resolving]

NARRATIVE: CASE EVENT DATE: 20251008
